FAERS Safety Report 5808266-8 (Version None)
Quarter: 2008Q3

REPORT INFORMATION
  Report Type: 
  Country: None (occurrence: None)
  Receive Date: 20080709
  Receipt Date: 20080623
  Transmission Date: 20090109
  Serious: Yes (Life-Threatening, Hospitalization, Other)
  Sender: FDA-Public Use
  Company Number: 030240

PATIENT
  Age: 79 Year
  Sex: Male

DRUGS (10)
  1. FLUCONAZOLE [Suspect]
  2. SIMVASTATIN [Suspect]
  3. GOSERELIN (GOSERELIN) [Concomitant]
  4. INSULIN (INSULIN) [Concomitant]
  5. LISINOPRIL [Concomitant]
  6. MOMETASONE FUROATE [Concomitant]
  7. TERAZOSIN HCL [Concomitant]
  8. THIAMINE (THIAMINE) [Concomitant]
  9. TOLTERODINE TARTRATE [Concomitant]
  10. FOLATE SODIUM (FOLATE SODIUM) [Concomitant]

REACTIONS (4)
  - CEREBROVASCULAR ACCIDENT [None]
  - DRUG INTERACTION [None]
  - RENAL FAILURE ACUTE [None]
  - RHABDOMYOLYSIS [None]
